FAERS Safety Report 4731678-0 (Version None)
Quarter: 2005Q3

REPORT INFORMATION
  Report Type: 
  Country: None (occurrence: None)
  Receive Date: 20050725
  Receipt Date: 20050304
  Transmission Date: 20060218
  Serious: Yes (Hospitalization)
  Sender: FDA-Public Use
  Company Number: WAES 0503AUS00034

PATIENT
  Age: 57 Year
  Sex: Female

DRUGS (6)
  1. VIOXX [Suspect]
     Dosage: PO
     Route: 048
  2. NICOTINE POLACRILEX [Suspect]
     Indication: EX-SMOKER
     Dosage: PO
     Route: 048
     Dates: start: 20040712, end: 20040712
  3. DICLOFENAC SODIUM [Suspect]
  4. MOCLOBEMIDE [Concomitant]
  5. RALOXIFENE HCL [Concomitant]
  6. SIMVASTATIN [Concomitant]

REACTIONS (1)
  - ABDOMINAL PAIN UPPER [None]
